FAERS Safety Report 8755880 (Version 2)
Quarter: 2012Q4

REPORT INFORMATION
  Report Type: 
  Country: US (occurrence: US)
  Receive Date: 20120827
  Receipt Date: 20120907
  Transmission Date: 20130627
  Serious: Yes (Hospitalization, Disabling, Other)
  Sender: FDA-Public Use
  Company Number: US-009507513-2011SP037383

PATIENT

DRUGS (4)
  1. NUVARING [Suspect]
     Indication: CONTRACEPTION
     Dates: start: 20090604, end: 20090814
  2. COUMADIN [Suspect]
     Indication: ANTICOAGULANT THERAPY
     Dosage: 5 mg, QD
     Dates: start: 20090815
  3. RELPAX [Suspect]
     Indication: HEADACHE
  4. TREXIMET [Suspect]
     Indication: HEADACHE

REACTIONS (18)
  - Pulmonary embolism [Unknown]
  - Deep vein thrombosis [Recovered/Resolved]
  - Coagulopathy [Unknown]
  - Chest pain [Not Recovered/Not Resolved]
  - Dyspnoea [Unknown]
  - Back pain [Unknown]
  - Vaginal infection [Not Recovered/Not Resolved]
  - Headache [Not Recovered/Not Resolved]
  - Alopecia [Unknown]
  - Visual acuity reduced [Unknown]
  - Pain in extremity [Not Recovered/Not Resolved]
  - Diplopia [Unknown]
  - Facial pain [Unknown]
  - Abdominal pain upper [Unknown]
  - Dysarthria [Unknown]
  - Dry throat [Unknown]
  - Dysphagia [Unknown]
  - Insomnia [Unknown]
